FAERS Safety Report 9326823 (Version 3)
Quarter: 2013Q3

REPORT INFORMATION
  Report Type: Spontaneous
  Country: DE (occurrence: None)
  Receive Date: 20130522
  Receipt Date: 20130807
  Transmission Date: 20140515
  Serious: Yes (Other)
  Sender: FDA-Public Use
  Company Number: 2013036111

PATIENT
  Age: 72 Year
  Sex: Male

DRUGS (4)
  1. PRIVIGEN (IMMUNE GLOBULIN INTRAVENOUS (HUMAN) 10% LIQUID) [Suspect]
     Indication: GUILLAIN-BARRE SYNDROME
     Dosage: 30 Q QD, MAX. INFUSION RATE: 30 ML/HR
     Route: 042
     Dates: start: 20130502, end: 20130502
  2. OCTAGAM [Suspect]
     Dosage: , MAY 3 AND MAY 6
     Route: 042
     Dates: start: 20130503, end: 20130506
  3. CLEXANE (ENOXAPARIN SODIUM) [Concomitant]
  4. LISINOPRIL (LISINOPRIL) [Concomitant]

REACTIONS (10)
  - Haemolysis [None]
  - Haemoglobin decreased [None]
  - Chromaturia [None]
  - Jaundice [None]
  - Nausea [None]
  - Vomiting [None]
  - Decreased appetite [None]
  - Malaise [None]
  - Hyperhidrosis [None]
  - Haemoglobinuria [None]
